FAERS Safety Report 8001668-3 (Version None)
Quarter: 2011Q4

REPORT INFORMATION
  Report Type: 
  Country: None (occurrence: None)
  Receive Date: 20111222
  Receipt Date: 20111220
  Transmission Date: 20120403
  Serious: Yes (Other)
  Sender: FDA-Public Use
  Company Number: US-ROCHE-754826

PATIENT
  Sex: Female
  Weight: 59.02 kg

DRUGS (1)
  1. ACCUTANE [Suspect]
     Indication: ACNE
     Route: 065
     Dates: start: 20040101, end: 20041201

REACTIONS (15)
  - INFLAMMATORY BOWEL DISEASE [None]
  - PANCREATITIS [None]
  - CHEST PAIN [None]
  - DEPRESSION [None]
  - CONVULSION [None]
  - HYPOXIA [None]
  - LIVER DISORDER [None]
  - RENAL DISORDER [None]
  - IRRITABLE BOWEL SYNDROME [None]
  - GASTROINTESTINAL INJURY [None]
  - BLOOD TRIGLYCERIDES INCREASED [None]
  - PEPTIC ULCER [None]
  - CROHN'S DISEASE [None]
  - BLOOD CHOLESTEROL INCREASED [None]
  - HEPATIC ENZYME INCREASED [None]
